FAERS Safety Report 11305839 (Version 1)
Quarter: 2015Q3

REPORT INFORMATION
  Report Type: Spontaneous
  Country: US (occurrence: US)
  Receive Date: 20150723
  Receipt Date: 20150723
  Transmission Date: 20151125
  Serious: Yes (Death)
  Sender: FDA-Public Use
  Company Number: US-ASTELLAS-2015US025074

PATIENT
  Sex: Male

DRUGS (1)
  1. XTANDI [Suspect]
     Active Substance: ENZALUTAMIDE
     Indication: PROSTATE CANCER
     Dosage: 160 MG (4DF), ONCE DAILY BY MOUTH
     Route: 048
     Dates: start: 20150616

REACTIONS (4)
  - Chest pain [Unknown]
  - Death [Fatal]
  - Nasal discomfort [Unknown]
  - Throat irritation [Unknown]
